FAERS Safety Report 5006615-4 (Version None)
Quarter: 2006Q2

REPORT INFORMATION
  Report Type: 
  Country: None (occurrence: None)
  Receive Date: 20060519
  Receipt Date: 20060517
  Transmission Date: 20061013
  Serious: Yes (Hospitalization)
  Sender: FDA-Public Use
  Company Number: FR-GLAXOSMITHKLINE-B0424104A

PATIENT
  Age: 85 Year
  Sex: Female
  Weight: 50 kg

DRUGS (6)
  1. CLAMOXYL [Suspect]
     Dosage: 1G UNKNOWN
     Route: 048
     Dates: start: 20060324, end: 20060330
  2. LOVENOX [Suspect]
     Indication: PHLEBITIS
     Dosage: .5ML TWICE PER DAY
     Route: 058
     Dates: start: 20060320, end: 20060329
  3. OLMESARTAN MEDOXOMIL [Suspect]
     Indication: ESSENTIAL HYPERTENSION
     Dosage: 20MG PER DAY
     Route: 048
     Dates: end: 20060330
  4. PREVISCAN [Suspect]
     Route: 048
     Dates: start: 20060322, end: 20060329
  5. CLARITHROMYCIN [Suspect]
     Dosage: .5G UNKNOWN
     Route: 048
     Dates: start: 20060325, end: 20060330
  6. LEVOTHYROX [Concomitant]
     Indication: HYPERTHYROIDISM
     Dosage: 75MCG PER DAY
     Route: 048

REACTIONS (11)
  - ABDOMINAL PAIN LOWER [None]
  - ANAEMIA [None]
  - C-REACTIVE PROTEIN INCREASED [None]
  - COAGULATION FACTOR VII LEVEL DECREASED [None]
  - DIARRHOEA [None]
  - DIVERTICULUM INTESTINAL [None]
  - DRUG INTERACTION [None]
  - HAEMATOMA [None]
  - INTERNATIONAL NORMALISED RATIO INCREASED [None]
  - OVERDOSE [None]
  - RENAL FAILURE [None]
